FAERS Safety Report 19379686 (Version 1)
Quarter: 2021Q2

REPORT INFORMATION
  Report Type: Spontaneous
  Country: GB (occurrence: GB)
  Receive Date: 20210607
  Receipt Date: 20210607
  Transmission Date: 20210717
  Serious: Yes (Other)
  Sender: FDA-Public Use
  Company Number: GB-JNJFOC-20210608691

PATIENT
  Age: 21 Year
  Sex: Female

DRUGS (2)
  1. REMICADE [Suspect]
     Active Substance: INFLIXIMAB
     Indication: ILL-DEFINED DISORDER
     Route: 042
     Dates: start: 20210523
  2. MACROGOL [Concomitant]
     Active Substance: POLYETHYLENE GLYCOLS
     Indication: ILL-DEFINED DISORDER
     Dosage: USE AS DIRECTED
     Route: 065
     Dates: start: 20210523

REACTIONS (2)
  - Product used for unknown indication [Unknown]
  - Off label use [Unknown]

NARRATIVE: CASE EVENT DATE: 20210602
